FAERS Safety Report 4771911-2 (Version None)
Quarter: 2005Q3

REPORT INFORMATION
  Report Type: 
  Country: None (occurrence: None)
  Receive Date: 20050916
  Receipt Date: 20050913
  Transmission Date: 20060218
  Serious: Yes (Hospitalization)
  Sender: FDA-Public Use
  Company Number: US-GLAXOSMITHKLINE-A0574244A

PATIENT
  Sex: Female

DRUGS (2)
  1. WELLBUTRIN XL [Suspect]
     Indication: DEPRESSION
     Dosage: 10TAB SINGLE DOSE
     Route: 048
     Dates: start: 20050801
  2. NO CONCURRENT MEDICATION [Concomitant]

REACTIONS (8)
  - DIZZINESS [None]
  - GASTROINTESTINAL PAIN [None]
  - HYPOAESTHESIA ORAL [None]
  - NAUSEA [None]
  - OVERDOSE [None]
  - SUICIDE ATTEMPT [None]
  - TREMOR [None]
  - VOMITING [None]
